FAERS Safety Report 17214243 (Version 1)
Quarter: 2019Q4

REPORT INFORMATION
  Report Type: Spontaneous
  Country: US (occurrence: US)
  Receive Date: 20191206
  Receipt Date: 20191206
  Transmission Date: 20200122
  Serious: No
  Sender: FDA-Public Use
  Company Number: None

PATIENT
  Sex: Male

DRUGS (1)
  1. ENBREL [Suspect]
     Active Substance: ETANERCEPT
     Indication: DRUG THERAPY
     Route: 058
     Dates: start: 20180621

REACTIONS (3)
  - Influenza like illness [None]
  - Malaise [None]
  - Therapy cessation [None]
